FAERS Safety Report 23839185 (Version 1)
Quarter: 2024Q2

REPORT INFORMATION
  Report Type: Spontaneous
  Country: US (occurrence: US)
  Receive Date: 20240509
  Receipt Date: 20240509
  Transmission Date: 20240716
  Serious: Yes (Death, Life-Threatening, Hospitalization, Other)
  Sender: FDA-Public Use
  Company Number: US-ELI_LILLY_AND_COMPANY-US202405004183

PATIENT
  Age: 64 Year
  Sex: Female

DRUGS (1)
  1. TIRZEPATIDE [Suspect]
     Active Substance: TIRZEPATIDE
     Indication: Weight control
     Dosage: UNK, UNKNOWN
     Route: 065

REACTIONS (7)
  - Pancreatitis necrotising [Fatal]
  - Respiratory failure [Unknown]
  - Hypotension [Unknown]
  - Enterococcal infection [Unknown]
  - Disseminated intravascular coagulation [Unknown]
  - Anisocoria [Unknown]
  - Oliguria [Unknown]
